FAERS Safety Report 7302143-1 (Version None)
Quarter: 2011Q1

REPORT INFORMATION
  Report Type: 
  Country: None (occurrence: None)
  Receive Date: 20110218
  Receipt Date: 20110214
  Transmission Date: 20110831
  Serious: Yes (Hospitalization)
  Sender: FDA-Public Use
  Company Number: FR-MERCK-1102FRA00105

PATIENT
  Age: 79 Year
  Sex: Female

DRUGS (9)
  1. POTASSIUM CHLORIDE [Concomitant]
     Route: 048
  2. BETAXOLOL HYDROCHLORIDE [Concomitant]
     Route: 048
  3. LANSOPRAZOLE [Concomitant]
     Route: 048
  4. CALCIUM CARBONATE AND CHOLECALCIFEROL [Concomitant]
     Route: 048
  5. LOPERAMIDE OXIDE [Concomitant]
     Route: 048
  6. ZOLPIDEM TARTRATE [Concomitant]
     Route: 048
  7. HYDROXYZINE HYDROCHLORIDE [Concomitant]
     Route: 048
  8. JANUVIA [Suspect]
     Indication: TYPE 2 DIABETES MELLITUS
     Route: 048
     Dates: start: 20100709, end: 20110101
  9. HYDROCHLOROTHIAZIDE [Concomitant]
     Route: 048

REACTIONS (3)
  - PEMPHIGOID [None]
  - URTICARIA [None]
  - PRURITUS [None]
